FAERS Safety Report 8590699-0 (Version None)
Quarter: 2012Q3

REPORT INFORMATION
  Report Type: 
  Country: None (occurrence: None)
  Receive Date: 20120801
  Receipt Date: 20120723
  Transmission Date: 20120928
  Serious: Yes (Other)
  Sender: FDA-Public Use
  Company Number: ADR-2012-00697

PATIENT
  Sex: Female

DRUGS (3)
  1. BACLOFEN [Suspect]
     Indication: PAIN
  2. BACLOFEN [Suspect]
     Indication: POST LAMINECTOMY SYNDROME
  3. HYDROMORPHONE HYDROCHLORIDE [Concomitant]

REACTIONS (6)
  - IMPLANT SITE INFECTION [None]
  - NO THERAPEUTIC RESPONSE [None]
  - PAIN [None]
  - IMPLANT SITE OEDEMA [None]
  - SPINAL CORD OEDEMA [None]
  - IMPLANT SITE EROSION [None]
